FAERS Safety Report 14813800 (Version 7)
Quarter: 2024Q4

REPORT INFORMATION
  Report Type: Spontaneous
  Country: US (occurrence: US)
  Receive Date: 20180426
  Receipt Date: 20241105
  Transmission Date: 20250115
  Serious: No
  Sender: PFIZER
  Company Number: US-PFIZER INC-2018170624

PATIENT
  Age: 34 Year
  Sex: Male

DRUGS (2)
  1. XELJANZ XR [Suspect]
     Active Substance: TOFACITINIB CITRATE
     Indication: Rheumatoid arthritis
     Dosage: 11 MG, 1X/DAY
     Dates: start: 2018
  2. XELJANZ XR [Suspect]
     Active Substance: TOFACITINIB CITRATE
     Dosage: UNK
     Dates: start: 2019

REACTIONS (8)
  - Pain in extremity [Unknown]
  - Swelling [Recovering/Resolving]
  - Upper respiratory tract infection [Unknown]
  - Arthralgia [Unknown]
  - Headache [Unknown]
  - Weight increased [Unknown]
  - Fatigue [Recovering/Resolving]
  - Product dose omission in error [Unknown]
